FAERS Safety Report 5273740-2 (Version None)
Quarter: 2007Q1

REPORT INFORMATION
  Report Type: 
  Country: None (occurrence: None)
  Receive Date: 20061219
  Receipt Date: 20060915
  Transmission Date: 20070707
  Serious: Yes (Hospitalization, Other)
  Sender: FDA-Public Use
  Company Number: US-JNJFOC-20060900634

PATIENT
  Age: 12 Year
  Sex: Female
  Weight: 77.5651 kg

DRUGS (2)
  1. ORTHO EVRA [Suspect]
     Indication: PREMENSTRUAL SYNDROME
     Dosage: TRANSDERMAL
     Route: 062
     Dates: start: 20040301, end: 20040401
  2. METFORMIN HCL [Concomitant]

REACTIONS (1)
  - DEEP VEIN THROMBOSIS [None]
